FAERS Safety Report 7232482-4 (Version None)
Quarter: 2011Q1

REPORT INFORMATION
  Report Type: 
  Country: None (occurrence: None)
  Receive Date: 20110119
  Receipt Date: 20101123
  Transmission Date: 20110831
  Serious: Yes (Hospitalization, Other)
  Sender: FDA-Public Use
  Company Number: US-BAYER-201038247NA

PATIENT
  Sex: Female
  Weight: 72.562 kg

DRUGS (13)
  1. LISINOPRIL [Concomitant]
     Dosage: 20 MG, QD
     Dates: start: 20040801, end: 20080101
  2. SYNTHROID [Concomitant]
  3. NSAID'S [Concomitant]
  4. SPIRONOLACTONE [Concomitant]
     Dosage: UNK
     Dates: start: 20050101
  5. DETROL LA [Concomitant]
  6. OCELLA [Suspect]
  7. ASCORBIC ACID [Concomitant]
  8. POTASSIUM [POTASSIUM] [Concomitant]
  9. NORVASC [Concomitant]
  10. MULTI-VITAMIN [Concomitant]
     Dosage: UNK UNK, QD
  11. YAZ [Suspect]
     Indication: MENSTRUAL CYCLE MANAGEMENT
  12. YASMIN [Suspect]
     Indication: MENSTRUAL CYCLE MANAGEMENT
     Dosage: UNK
     Dates: start: 20040101, end: 20050101
  13. TETRACYCLINE [Concomitant]
     Indication: ACNE

REACTIONS (4)
  - BUDD-CHIARI SYNDROME [None]
  - HEPATOMEGALY [None]
  - HEPATIC VEIN THROMBOSIS [None]
  - SPLENOMEGALY [None]
